FAERS Safety Report 7309631-2 (Version None)
Quarter: 2011Q1

REPORT INFORMATION
  Report Type: 
  Country: None (occurrence: None)
  Receive Date: 20110223
  Receipt Date: 20101206
  Transmission Date: 20110831
  Serious: Yes (Other)
  Sender: FDA-Public Use
  Company Number: US-BAYER-201038881NA

PATIENT
  Sex: Female

DRUGS (7)
  1. ISENTRESS [Concomitant]
  2. RESCRIPTOR [Concomitant]
  3. FUROSEMIDE [Concomitant]
  4. CLONIDINE [Concomitant]
  5. FLECAINIDE ACETATE [Concomitant]
  6. METOPROLOL [Concomitant]
  7. AVELOX [Suspect]
     Indication: SINUSITIS
     Dosage: DAILY DOSE 400 MG
     Route: 048
     Dates: start: 20101016

REACTIONS (15)
  - DRUG HYPERSENSITIVITY [None]
  - VISION BLURRED [None]
  - ASTHENIA [None]
  - DIZZINESS [None]
  - MENTAL IMPAIRMENT [None]
  - ABDOMINAL DISCOMFORT [None]
  - FALL [None]
  - FEELING COLD [None]
  - PERIPHERAL COLDNESS [None]
  - AGITATION [None]
  - DISTURBANCE IN ATTENTION [None]
  - DISORIENTATION [None]
  - DYSGRAPHIA [None]
  - NERVOUSNESS [None]
  - DIZZINESS POSTURAL [None]
